FAERS Safety Report 7913257-7 (Version None)
Quarter: 2011Q4

REPORT INFORMATION
  Report Type: 
  Country: None (occurrence: None)
  Receive Date: 20111114
  Receipt Date: 20111104
  Transmission Date: 20120403
  Serious: Yes (Hospitalization, Other)
  Sender: FDA-Public Use
  Company Number: BR-ASTRAZENECA-2011SE65362

PATIENT
  Age: 94 Year
  Sex: Female
  Weight: 50 kg

DRUGS (3)
  1. SUSTRATE [Concomitant]
     Route: 048
     Dates: start: 20060101
  2. VASTAREL [Concomitant]
  3. ATACAND HCT [Suspect]
     Indication: HYPERTENSION
     Dosage: 16/12.5 MG, ONCE A DAY
     Route: 048
     Dates: end: 20110901

REACTIONS (4)
  - BLOOD SODIUM DECREASED [None]
  - BLOOD POTASSIUM INCREASED [None]
  - INSOMNIA [None]
  - DEMENTIA ALZHEIMER'S TYPE [None]
